FAERS Safety Report 11908625 (Version 1)
Quarter: 2016Q1

REPORT INFORMATION
  Report Type: Spontaneous
  Country: US (occurrence: US)
  Receive Date: 20160111
  Receipt Date: 20160111
  Transmission Date: 20160526
  Serious: Yes (Death, Other)
  Sender: FDA-Public Use
  Company Number: PHHY2015US171880

PATIENT
  Age: 22 Year
  Sex: Male

DRUGS (7)
  1. TEMOZOLOMIDE. [Suspect]
     Active Substance: TEMOZOLOMIDE
     Indication: MEDULLOBLASTOMA
     Route: 065
  2. THIORIDAZINE [Suspect]
     Active Substance: THIORIDAZINE
     Dosage: 175 MG, EVENING
     Route: 065
  3. VISMODEGIB [Suspect]
     Active Substance: VISMODEGIB
     Indication: MEDULLOBLASTOMA
     Route: 065
  4. THIORIDAZINE [Suspect]
     Active Substance: THIORIDAZINE
     Dosage: 150 MG, MORNING
     Route: 065
  5. ETOPOSIDE. [Suspect]
     Active Substance: ETOPOSIDE
     Indication: MEDULLOBLASTOMA
     Route: 065
  6. CELEBREX [Suspect]
     Active Substance: CELECOXIB
     Indication: MEDULLOBLASTOMA
     Route: 065
  7. THIORIDAZINE [Suspect]
     Active Substance: THIORIDAZINE
     Indication: MEDULLOBLASTOMA
     Dosage: 50 MG, BID
     Route: 065

REACTIONS (5)
  - Depression [Unknown]
  - Drug intolerance [Unknown]
  - Medulloblastoma [Fatal]
  - Disease progression [Fatal]
  - Affect lability [Unknown]
